FAERS Safety Report 9380645 (Version 1)
Quarter: 2013Q2

REPORT INFORMATION
  Report Type: Spontaneous
  Country: US (occurrence: None)
  Receive Date: 20130628
  Receipt Date: 20130628
  Transmission Date: 20140414
  Serious: Yes (Hospitalization, Other)
  Sender: FDA-Public Use
  Company Number: 2013AP006176

PATIENT
  Age: 59 Year
  Sex: Male

DRUGS (1)
  1. ZIPRASIDONE HYDROCHLORIDE [Suspect]
     Indication: SCHIZOPHRENIA

REACTIONS (7)
  - Hypothermia [None]
  - Electrocardiogram ST segment abnormal [None]
  - Slow response to stimuli [None]
  - Pupillary reflex impaired [None]
  - Sinus bradycardia [None]
  - Blood pH decreased [None]
  - PCO2 increased [None]
